FAERS Safety Report 7797202-3 (Version None)
Quarter: 2011Q4

REPORT INFORMATION
  Report Type: 
  Country: None (occurrence: None)
  Receive Date: 20111005
  Receipt Date: 20110922
  Transmission Date: 20120403
  Serious: Yes (Other)
  Sender: FDA-Public Use
  Company Number: PHHY2011MX57191

PATIENT
  Age: 60 Year
  Sex: Female

DRUGS (6)
  1. ASPIRIN [Concomitant]
     Dosage: 100 MG, QD
     Dates: start: 20110601
  2. OMEPRAZOLE [Concomitant]
     Dosage: UNK UKN, UNK
     Dates: start: 20110601
  3. SINTROM [Concomitant]
     Dosage: 4 MG, UNK
  4. EXFORGE HCT [Suspect]
     Indication: HYPERTENSION
     Dosage: 320 MG OF VALS, 10 MG OF AMLO AND 25 MG OF HYD DAILY
     Dates: start: 20110101
  5. EXFORGE HCT [Suspect]
     Dosage: 0.5 TAB OF 320 MG OF VALS, 10 MG OF AMLO AND 25 MG OF HYD, PER DAY
     Dates: start: 20110105
  6. LEVOTHYROXINE [Concomitant]
     Dosage: 75 MG, DAILY

REACTIONS (9)
  - THROMBOSIS [None]
  - RASH [None]
  - FATIGUE [None]
  - WEIGHT LOSS POOR [None]
  - PAIN IN EXTREMITY [None]
  - CONTUSION [None]
  - HYPOTENSION [None]
  - ERYTHEMA [None]
  - GAIT DISTURBANCE [None]
